FAERS Safety Report 21610167 (Version 2)
Quarter: 2022Q4

REPORT INFORMATION
  Report Type: Spontaneous
  Country: US (occurrence: US)
  Receive Date: 20221117
  Receipt Date: 20221130
  Transmission Date: 20230112
  Serious: No
  Sender: FDA-Public Use
  Company Number: US-UNITED THERAPEUTICS-UNT-2022-026234

PATIENT
  Age: 52 Year
  Sex: Male
  Weight: 94.785 kg

DRUGS (5)
  1. REMODULIN [Suspect]
     Active Substance: TREPROSTINIL
     Indication: Pulmonary arterial hypertension
     Dosage: 0.020 ?G/KG (SELF-FILLED CASSETTE WITH 2.2ML PER CASSETTE AT PUMP RATE OF 23 MCL/HOUR), CONTINUING
     Route: 058
     Dates: start: 20221025
  2. REMODULIN [Suspect]
     Active Substance: TREPROSTINIL
     Dosage: 0.026 ?G/KG, CONTINUING (SELF-FILLED REMUNITY; FILL CASSETTE WITH 2.7 ML; RATE OF 30 MCL PER HOUR)
     Route: 058
     Dates: start: 2022
  3. AMBRISENTAN [Concomitant]
     Active Substance: AMBRISENTAN
     Indication: Product used for unknown indication
     Dosage: UNK
     Route: 065
  4. SILDENAFIL [Concomitant]
     Active Substance: SILDENAFIL
     Indication: Product used for unknown indication
     Dosage: UNK
     Route: 065
  5. UPTRAVI [Concomitant]
     Active Substance: SELEXIPAG
     Indication: Pulmonary arterial hypertension
     Dosage: 1600 ?G, BID
     Route: 048
     Dates: end: 2022

REACTIONS (3)
  - Infusion site pain [Not Recovered/Not Resolved]
  - Infusion site erythema [Unknown]
  - Device power source issue [Unknown]

NARRATIVE: CASE EVENT DATE: 20221001
